FAERS Safety Report 4603219-X (Version None)
Quarter: 2005Q1

REPORT INFORMATION
  Report Type: 
  Country: None (occurrence: None)
  Receive Date: 20050307
  Receipt Date: 20050223
  Transmission Date: 20050727
  Serious: Yes (Hospitalization, Other)
  Sender: FDA-Public Use
  Company Number: 2005036008

PATIENT
  Age: 83 Year
  Sex: Female

DRUGS (6)
  1. ALDACTONE [Suspect]
     Indication: HYPERTENSION
     Dosage: 100 MG (100 MG, DAILY, INTERVAL:  EVERY DAY),ORAL
     Route: 048
     Dates: end: 20050112
  2. ENALAPRIL HEUMANN (ENALAPRIL MALEATE) [Suspect]
     Indication: HYPERTENSION
     Dosage: 20 MG (20 MG, DAILY, INTERVAL:  EVERY DAY), ORAL
     Route: 048
     Dates: end: 20050112
  3. INDAPAMIDE [Concomitant]
  4. FUROSEMIDE [Concomitant]
  5. SALBUTAMOL (SALBUTAMOL) [Concomitant]
  6. IRON (IRON) [Concomitant]

REACTIONS (3)
  - ATRIOVENTRICULAR BLOCK COMPLETE [None]
  - DRUG INTERACTION [None]
  - HYPERKALAEMIA [None]
